FAERS Safety Report 5225801-1 (Version None)
Quarter: 2007Q1

REPORT INFORMATION
  Report Type: 
  Country: None (occurrence: None)
  Receive Date: 20070130
  Receipt Date: 20070130
  Transmission Date: 20070707
  Serious: Yes (Hospitalization)
  Sender: FDA-Public Use
  Company Number: None

PATIENT
  Sex: Male
  Weight: 89 kg

DRUGS (10)
  1. FLUDARABINE [Suspect]
     Indication: STEM CELL TRANSPLANT
     Dosage: 60MG DAILY IV DRIP
     Route: 041
     Dates: start: 20061212, end: 20061216
  2. MELPHALAN [Suspect]
     Dosage: 280 ONCE IV DRIP
     Route: 041
     Dates: start: 20061217, end: 20061217
  3. CAMPATH [Suspect]
     Indication: STEM CELL TRANSPLANT
     Dosage: 20MG DAILY IV DRIP
     Route: 041
     Dates: start: 20061212, end: 20061216
  4. PROGRAF [Concomitant]
  5. COZAAR [Concomitant]
  6. AZTRIONAN [Concomitant]
  7. FLAGYL [Concomitant]
  8. VALTRES [Concomitant]
  9. LINEZOLID [Concomitant]
  10. AMPHOTERICIN B [Concomitant]

REACTIONS (2)
  - HYPOVENTILATION [None]
  - POST PROCEDURAL COMPLICATION [None]
